FAERS Safety Report 24035510 (Version 1)
Quarter: 2024Q3

REPORT INFORMATION
  Report Type: Spontaneous
  Country: DE (occurrence: DE)
  Receive Date: 20240701
  Receipt Date: 20240701
  Transmission Date: 20241016
  Serious: Yes (Other)
  Sender: PFIZER
  Company Number: DE-PFIZER INC-PV202400085323

PATIENT
  Age: 46 Year
  Sex: Female

DRUGS (2)
  1. LORLATINIB [Suspect]
     Active Substance: LORLATINIB
     Indication: Non-small cell lung cancer
     Dosage: 100 MG
     Dates: start: 20231128
  2. LORLATINIB [Suspect]
     Active Substance: LORLATINIB
     Dosage: 75 MG
     Dates: start: 20231226, end: 20231229

REACTIONS (6)
  - Hallucination, visual [Recovered/Resolved]
  - Headache [Recovered/Resolved]
  - Dizziness [Recovered/Resolved]
  - Sleep disorder [Recovered/Resolved]
  - Generalised anxiety disorder [Recovered/Resolved]
  - Morbid thoughts [Recovered/Resolved]

NARRATIVE: CASE EVENT DATE: 20231201
